FAERS Safety Report 10260932 (Version 3)
Quarter: 2014Q4

REPORT INFORMATION
  Report Type: Report from Study
  Country: FR (occurrence: None)
  Receive Date: 20140623
  Receipt Date: 20141219
  Transmission Date: 20150528
  Serious: Yes (Hospitalization)
  Sender: FDA-Public Use
  Company Number: 2014MPI00708

PATIENT
  Age: 78 Year
  Sex: Female
  Weight: 65.3 kg

DRUGS (1)
  1. BRENTUXIMAB VEDOTIN [Suspect]
     Active Substance: BRENTUXIMAB VEDOTIN
     Indication: LYMPHOMA
     Route: 042
     Dates: start: 20140310, end: 20140604

REACTIONS (5)
  - Weight decreased [None]
  - Dizziness [None]
  - General physical health deterioration [None]
  - Vomiting [None]
  - Asthenia [None]

NARRATIVE: CASE EVENT DATE: 20140606
